FAERS Safety Report 24584579 (Version 1)
Quarter: 2024Q4

REPORT INFORMATION
  Report Type: Spontaneous
  Country: US (occurrence: None)
  Receive Date: 20241105
  Receipt Date: 20241105
  Transmission Date: 20250115
  Serious: Yes (Other)
  Sender: Public
  Company Number: None

PATIENT
  Age: 65 Year
  Sex: Female
  Weight: 46.72 kg

DRUGS (1)
  1. TYMLOS [Suspect]
     Active Substance: ABALOPARATIDE
     Indication: Osteoporosis
     Dates: start: 20220801

REACTIONS (4)
  - Tachycardia [None]
  - Presyncope [None]
  - Loss of consciousness [None]
  - Therapy cessation [None]

NARRATIVE: CASE EVENT DATE: 20230901
